FAERS Safety Report 17816359 (Version 2)
Quarter: 2020Q2

REPORT INFORMATION
  Report Type: Spontaneous
  Country: FR (occurrence: FR)
  Receive Date: 20200522
  Receipt Date: 20200529
  Transmission Date: 20200714
  Serious: Yes (Other)
  Sender: FDA-Public Use
  Company Number: FR-MYLANLABS-2020M1050371

PATIENT
  Sex: Female

DRUGS (2)
  1. LEVETIRACETAM  MYLAN [Suspect]
     Active Substance: LEVETIRACETAM
     Indication: PRODUCT USED FOR UNKNOWN INDICATION
     Dosage: 1500 DAILY (750 X 2 MORNING AND NIGHT)
  2. LEVETIRACETAM  MYLAN [Suspect]
     Active Substance: LEVETIRACETAM
     Dosage: UNK

REACTIONS (4)
  - Maternal exposure during pregnancy [Recovered/Resolved]
  - Intentional product use issue [Unknown]
  - Seizure [Unknown]
  - Fatigue [Unknown]
